FAERS Safety Report 13131725 (Version 1)
Quarter: 2017Q1

REPORT INFORMATION
  Report Type: Spontaneous
  Country: US (occurrence: US)
  Receive Date: 20170119
  Receipt Date: 20170119
  Transmission Date: 20170428
  Serious: No
  Sender: FDA-Public Use
  Company Number: US-PFIZER INC-2017024712

PATIENT
  Sex: Female

DRUGS (1)
  1. XELJANZ [Suspect]
     Active Substance: TOFACITINIB CITRATE
     Dosage: 5 MG, UNK

REACTIONS (12)
  - Dry mouth [Unknown]
  - Dry eye [Unknown]
  - Joint swelling [Recovering/Resolving]
  - Fatigue [Unknown]
  - Cataract [Unknown]
  - Dyspepsia [Unknown]
  - Weight increased [Unknown]
  - Headache [Unknown]
  - Paraesthesia [Unknown]
  - Arthralgia [Recovering/Resolving]
  - Depression [Unknown]
  - Myalgia [Unknown]
